FAERS Safety Report 19989650 (Version 1)
Quarter: 2021Q4

REPORT INFORMATION
  Report Type: Other
  Country: US (occurrence: US)
  Receive Date: 20211025
  Receipt Date: 20211025
  Transmission Date: 20220303
  Serious: No
  Sender: FDA-Public Use
  Company Number: US-NEUROCRINE BIOSCIENCES INC.-2021NBI05974

PATIENT

DRUGS (1)
  1. INGREZZA [Suspect]
     Active Substance: VALBENAZINE
     Indication: Chorea
     Dosage: 60 MILLIGRAM
     Route: 065
     Dates: end: 20211013

REACTIONS (2)
  - Adverse drug reaction [Unknown]
  - Off label use [Unknown]
